FAERS Safety Report 20885693 (Version 2)
Quarter: 2022Q3

REPORT INFORMATION
  Report Type: Spontaneous
  Country: US (occurrence: US)
  Receive Date: 20220527
  Receipt Date: 20220720
  Transmission Date: 20221026
  Serious: Yes (Other)
  Sender: FDA-Public Use
  Company Number: US-ALLERGAN-2217510US

PATIENT
  Sex: Male

DRUGS (1)
  1. VUITY [Suspect]
     Active Substance: PILOCARPINE HYDROCHLORIDE
     Indication: Presbyopia
     Route: 047

REACTIONS (3)
  - Retinal detachment [Unknown]
  - Retinal tear [Unknown]
  - Vitreous detachment [Unknown]
